FAERS Safety Report 8008148-X (Version None)
Quarter: 2011Q4

REPORT INFORMATION
  Report Type: 
  Country: None (occurrence: None)
  Receive Date: 20111227
  Receipt Date: 20111222
  Transmission Date: 20120403
  Serious: Yes (Hospitalization)
  Sender: FDA-Public Use
  Company Number: PHHY2011ZA94696

PATIENT
  Sex: Female

DRUGS (1)
  1. ZOLEDRONOC ACID [Suspect]
     Dosage: 5 MG/100 ML
     Route: 042
     Dates: start: 20110901

REACTIONS (3)
  - PRURITUS [None]
  - PANTOEA AGGLOMERANS INFECTION [None]
  - RASH [None]
